FAERS Safety Report 16451204 (Version 2)
Quarter: 2019Q4

REPORT INFORMATION
  Report Type: Report from Study
  Country: IT (occurrence: IT)
  Receive Date: 20190619
  Receipt Date: 20191015
  Transmission Date: 20200122
  Serious: Yes (Life-Threatening)
  Sender: FDA-Public Use
  Company Number: IT-PFIZER INC-2019259482

PATIENT
  Sex: Female
  Weight: 71 kg

DRUGS (102)
  1. TRUXIMA [Suspect]
     Active Substance: RITUXIMAB-ABBS
     Dosage: 667.5 MG, UNK (667.5 MG + CHOP)
     Route: 042
     Dates: start: 20180712
  2. TRUXIMA [Suspect]
     Active Substance: RITUXIMAB-ABBS
     Dosage: 665 MG, UNK (665 MG + IEV)
     Route: 042
     Dates: start: 20181023
  3. CHLORPHENAMINE [Suspect]
     Active Substance: CHLORPHENIRAMINE MALEATE
     Dosage: 10 MG, UNK (10 MG, INFUSION)
     Dates: start: 20180329
  4. ETOPOSIDE. [Suspect]
     Active Substance: ETOPOSIDE
     Indication: DIFFUSE LARGE B-CELL LYMPHOMA
     Dosage: 267 MG, UNK (267 MG, INFUSION)
     Dates: start: 20180928
  5. SODIUM CHLORIDE. [Concomitant]
     Active Substance: SODIUM CHLORIDE
     Dosage: INFUSION
     Dates: start: 20180928
  6. DESAMETASONE [Concomitant]
     Active Substance: DEXAMETHASONE
     Dosage: 14.24 MG, INFUSION
     Dates: start: 20180928
  7. RINGER^S SOLUTION [CALCIUM CHLORIDE;POTASSIUM CHLORIDE;SODIUM CHLORIDE [Concomitant]
     Dosage: INFUSION
     Dates: start: 20180926
  8. RINGER^S SOLUTION [CALCIUM CHLORIDE;POTASSIUM CHLORIDE;SODIUM CHLORIDE [Concomitant]
     Dosage: INFUSION
     Dates: start: 20181025
  9. DOXORUBICIN HCL [Suspect]
     Active Substance: DOXORUBICIN HYDROCHLORIDE
     Indication: DIFFUSE LARGE B-CELL LYMPHOMA
     Dosage: 89 MG, UNK
     Route: 040
     Dates: start: 20180601
  10. DOXORUBICIN HCL [Suspect]
     Active Substance: DOXORUBICIN HYDROCHLORIDE
     Dosage: 89 MG, UNK
     Route: 040
     Dates: start: 20180419
  11. METHYLPREDNISOLONE SODIUM SUCCINATE. [Suspect]
     Active Substance: METHYLPREDNISOLONE SODIUM SUCCINATE
     Dosage: 125 MG, UNK
     Route: 040
     Dates: start: 20180622
  12. METHYLPREDNISOLONE SODIUM SUCCINATE. [Suspect]
     Active Substance: METHYLPREDNISOLONE SODIUM SUCCINATE
     Dosage: 125 MG, UNK
     Route: 040
     Dates: start: 20180713
  13. ONDANSETRON [Suspect]
     Active Substance: ONDANSETRON
     Indication: DIFFUSE LARGE B-CELL LYMPHOMA
     Dosage: 8 MG, UNK (8 MG, INFUSION)
     Dates: start: 20180601
  14. CYCLOPHOSPHAMIDE. [Suspect]
     Active Substance: CYCLOPHOSPHAMIDE
     Dosage: 1.33 MG, UNK (1.335 MG, INFUSION)
     Dates: start: 20180601
  15. CYCLOPHOSPHAMIDE. [Suspect]
     Active Substance: CYCLOPHOSPHAMIDE
     Dosage: 1.33 MG, UNK (1.335 MG, INFUSION)
     Dates: start: 20180419
  16. IFOSFAMIDE. [Suspect]
     Active Substance: IFOSFAMIDE
     Indication: DIFFUSE LARGE B-CELL LYMPHOMA
     Dosage: 4.4 MG, UNK (4.400 MG, INFUSION)
     Dates: start: 20180928
  17. ETOPOSIDE. [Suspect]
     Active Substance: ETOPOSIDE
     Dosage: 267 MG, UNK (267 MG, INFUSION)
     Dates: start: 20181024
  18. SODIUM CHLORIDE. [Concomitant]
     Active Substance: SODIUM CHLORIDE
     Dosage: INFUSION
     Dates: start: 20180926
  19. MESNA. [Concomitant]
     Active Substance: MESNA
     Dosage: 4.45 MG, UNK (4.450 MG, INFUSION)
     Dates: start: 20180927
  20. MESNA. [Concomitant]
     Active Substance: MESNA
     Dosage: 4.45 MG, UNK (4.450 MG, INFUSION)
     Dates: start: 20181026
  21. DESAMETASONE [Concomitant]
     Active Substance: DEXAMETHASONE
     Dosage: 14.24 MG, INFUSION
     Dates: start: 20181026
  22. GLUCOSE [Concomitant]
     Active Substance: DEXTROSE
     Dosage: 500 ML, INFUSION
     Dates: start: 20180926
  23. VINCRISTINE SULFATE. [Suspect]
     Active Substance: VINCRISTINE SULFATE
     Dosage: 2 MG, UNK
     Route: 040
     Dates: start: 20180713
  24. TRUXIMA [Suspect]
     Active Substance: RITUXIMAB-ABBS
     Dosage: 667.5 MG, UNK (667.5 MG + CHOP)
     Route: 042
     Dates: start: 20180621
  25. CHLORPHENAMINE [Suspect]
     Active Substance: CHLORPHENIRAMINE MALEATE
     Dosage: 10 MG, UNK (10 MG, INFUSION)
     Dates: start: 20180713
  26. CHLORPHENAMINE [Suspect]
     Active Substance: CHLORPHENIRAMINE MALEATE
     Dosage: 10 MG, UNK (10 MG, INFUSION)
     Dates: start: 20180419
  27. ONDANSETRON [Suspect]
     Active Substance: ONDANSETRON
     Dosage: 8 MG, WITH IEV THERAPY
     Dates: start: 20181026
  28. ONDANSETRON [Suspect]
     Active Substance: ONDANSETRON
     Dosage: 8 MG, UNK (8 MG, INFUSION)
     Dates: start: 20180329
  29. ONDANSETRON [Suspect]
     Active Substance: ONDANSETRON
     Dosage: 8 MG, UNK (8 MG, INFUSION)
     Dates: start: 20180419
  30. RINGER^S SOLUTION [CALCIUM CHLORIDE;POTASSIUM CHLORIDE;SODIUM CHLORIDE [Concomitant]
     Dosage: INFUSION
     Dates: start: 20181026
  31. DOXORUBICIN HCL [Suspect]
     Active Substance: DOXORUBICIN HYDROCHLORIDE
     Dosage: 89 MG, UNK
     Route: 040
     Dates: start: 20180713
  32. DOXORUBICIN HCL [Suspect]
     Active Substance: DOXORUBICIN HYDROCHLORIDE
     Dosage: 89 MG, UNK
     Route: 040
     Dates: start: 20180512
  33. VINCRISTINE SULFATE. [Suspect]
     Active Substance: VINCRISTINE SULFATE
     Indication: DIFFUSE LARGE B-CELL LYMPHOMA
     Dosage: 2 MG, UNK
     Route: 040
     Dates: start: 20180512
  34. VINCRISTINE SULFATE. [Suspect]
     Active Substance: VINCRISTINE SULFATE
     Dosage: 2 MG, UNK
     Route: 040
     Dates: start: 20180329
  35. VINCRISTINE SULFATE. [Suspect]
     Active Substance: VINCRISTINE SULFATE
     Dosage: 2 MG, UNK
     Route: 040
     Dates: start: 20180622
  36. ONDANSETRON [Suspect]
     Active Substance: ONDANSETRON
     Dosage: 8 MG, UNK (8 MG, INFUSION)
     Dates: start: 20180512
  37. ONDANSETRON [Suspect]
     Active Substance: ONDANSETRON
     Dosage: 8 MG, UNK (8 MG, WITH IEV THERAPY)
     Dates: start: 20181025
  38. ONDANSETRON [Suspect]
     Active Substance: ONDANSETRON
     Dosage: 8 MG, UNK (8 MG, INFUSION)
     Dates: start: 20180622
  39. ETOPOSIDE. [Suspect]
     Active Substance: ETOPOSIDE
     Dosage: 267 MG, UNK (267 MG, INFUSION)
     Dates: start: 20181025
  40. SODIUM CHLORIDE. [Concomitant]
     Active Substance: SODIUM CHLORIDE
     Dosage: INFUSION
     Dates: start: 20180927
  41. MESNA. [Concomitant]
     Active Substance: MESNA
     Dosage: 4.45 MG, UNK (4.450 MG, INFUSION)
     Dates: start: 20181024
  42. MESNA. [Concomitant]
     Active Substance: MESNA
     Dosage: 4.45 MG, UNK (4.450 MG, INFUSION)
     Dates: start: 20181025
  43. DESAMETASONE [Concomitant]
     Active Substance: DEXAMETHASONE
     Dosage: 14.24 MG, INFUSION
     Dates: start: 20181024
  44. POTASSIUM CHLORIDE. [Concomitant]
     Active Substance: POTASSIUM CHLORIDE
     Dosage: 40 MEQ, INFUSION
     Dates: start: 20181026
  45. GLUCOSE [Concomitant]
     Active Substance: DEXTROSE
     Dosage: 500 ML, INFUSION
     Dates: start: 20180927
  46. TRUXIMA [Suspect]
     Active Substance: RITUXIMAB-ABBS
     Dosage: 667.5 MG, UNK (667.5 MG + CHOP)
     Route: 042
     Dates: start: 20180418
  47. CHLORPHENAMINE [Suspect]
     Active Substance: CHLORPHENIRAMINE MALEATE
     Indication: DIFFUSE LARGE B-CELL LYMPHOMA
     Dosage: 10 MG, UNK (10 MG, INFUSION)
     Dates: start: 20180601
  48. CHLORPHENAMINE [Suspect]
     Active Substance: CHLORPHENIRAMINE MALEATE
     Dosage: 10 MG, UNK (10 MG, INFUSION)
     Dates: start: 20180512
  49. CYCLOPHOSPHAMIDE. [Suspect]
     Active Substance: CYCLOPHOSPHAMIDE
     Indication: DIFFUSE LARGE B-CELL LYMPHOMA
     Dosage: 1.33 MG, UNK (1.335 MG, INFUSION)
     Dates: start: 20180329
  50. CYCLOPHOSPHAMIDE. [Suspect]
     Active Substance: CYCLOPHOSPHAMIDE
     Dosage: 1.33 MG, UNK (1.335 MG, INFUSION)
     Dates: start: 20180622
  51. CYCLOPHOSPHAMIDE. [Suspect]
     Active Substance: CYCLOPHOSPHAMIDE
     Dosage: 1.33 MG, UNK (1.335 MG, INFUSION)
     Dates: start: 20180512
  52. SODIUM CHLORIDE. [Concomitant]
     Active Substance: SODIUM CHLORIDE
     Dosage: INFUSION
     Dates: start: 20181026
  53. SODIUM CHLORIDE. [Concomitant]
     Active Substance: SODIUM CHLORIDE
     Dosage: INFUSION
     Dates: start: 20181025
  54. SODIUM CHLORIDE. [Concomitant]
     Active Substance: SODIUM CHLORIDE
     Dosage: INFUSION
     Dates: start: 20181024
  55. POTASSIUM CHLORIDE. [Concomitant]
     Active Substance: POTASSIUM CHLORIDE
     Dosage: 40 MEQ, INFUSION
     Dates: start: 20180927
  56. POTASSIUM CHLORIDE. [Concomitant]
     Active Substance: POTASSIUM CHLORIDE
     Dosage: 40 MEQ, INFUSION
     Dates: start: 20180926
  57. GLUCOSE [Concomitant]
     Active Substance: DEXTROSE
     Dosage: 500 ML, INFUSION
     Dates: start: 20181024
  58. DOXORUBICIN HCL [Suspect]
     Active Substance: DOXORUBICIN HYDROCHLORIDE
     Dosage: 89 MG, UNK
     Route: 040
     Dates: start: 20180622
  59. EPIRUBICIN HCL [Suspect]
     Active Substance: EPIRUBICIN HYDROCHLORIDE
     Indication: DIFFUSE LARGE B-CELL LYMPHOMA
     Dosage: 178 MG, UNK
     Route: 030
     Dates: start: 20181024
  60. METHYLPREDNISOLONE SODIUM SUCCINATE. [Suspect]
     Active Substance: METHYLPREDNISOLONE SODIUM SUCCINATE
     Indication: DIFFUSE LARGE B-CELL LYMPHOMA
     Dosage: 125 MG, UNK
     Route: 040
     Dates: start: 20180601
  61. METHYLPREDNISOLONE SODIUM SUCCINATE. [Suspect]
     Active Substance: METHYLPREDNISOLONE SODIUM SUCCINATE
     Dosage: 125 MG, UNK
     Route: 040
     Dates: start: 20180419
  62. METHYLPREDNISOLONE SODIUM SUCCINATE. [Suspect]
     Active Substance: METHYLPREDNISOLONE SODIUM SUCCINATE
     Dosage: 125 MG, UNK
     Route: 040
     Dates: start: 20180329
  63. VINCRISTINE SULFATE. [Suspect]
     Active Substance: VINCRISTINE SULFATE
     Dosage: 2 MG, UNK
     Route: 040
     Dates: start: 20180601
  64. TRUXIMA [Suspect]
     Active Substance: RITUXIMAB-ABBS
     Indication: DIFFUSE LARGE B-CELL LYMPHOMA
     Dosage: 667.5 MG, UNK (667.5 MG + CHOP)
     Route: 042
     Dates: start: 20180531
  65. TRUXIMA [Suspect]
     Active Substance: RITUXIMAB-ABBS
     Dosage: 667.5 MG, UNK (667.5 MG + CHOP)
     Route: 042
     Dates: start: 20180511
  66. ONDANSETRON [Suspect]
     Active Substance: ONDANSETRON
     Dosage: 8 MG, UNK (8 MG, INFUSION)
     Dates: start: 20180713
  67. ONDANSETRON [Suspect]
     Active Substance: ONDANSETRON
     Dosage: 8 MG, UNK (8 MG, WITH ETOPOSIDE AND IFOSFAMIDE)
     Dates: start: 20180928
  68. IFOSFAMIDE. [Suspect]
     Active Substance: IFOSFAMIDE
     Dosage: 4.4 MG, UNK (4.400 MG, INFUSION)
     Dates: start: 20181026
  69. MESNA. [Concomitant]
     Active Substance: MESNA
     Dosage: 4.45 MG, UNK (4.450 MG, INFUSION)
     Dates: start: 20180926
  70. MESNA. [Concomitant]
     Active Substance: MESNA
     Dosage: 4.45 MG, UNK (4.450 MG, INFUSION)
     Dates: start: 20180928
  71. DESAMETASONE [Concomitant]
     Active Substance: DEXAMETHASONE
     Dosage: 14.24 MG, INFUSION
     Dates: start: 20180926
  72. DESAMETASONE [Concomitant]
     Active Substance: DEXAMETHASONE
     Dosage: 14.24 MG, INFUSION
     Dates: start: 20181025
  73. RINGER^S SOLUTION [CALCIUM CHLORIDE;POTASSIUM CHLORIDE;SODIUM CHLORIDE [Concomitant]
     Dosage: INFUSION
     Dates: start: 20180927
  74. RINGER^S SOLUTION [CALCIUM CHLORIDE;POTASSIUM CHLORIDE;SODIUM CHLORIDE [Concomitant]
     Dosage: INFUSION
     Dates: start: 20181024
  75. POTASSIUM CHLORIDE. [Concomitant]
     Active Substance: POTASSIUM CHLORIDE
     Dosage: 40 MEQ, INFUSION
     Dates: start: 20180928
  76. PALONOSETRON. [Concomitant]
     Active Substance: PALONOSETRON HYDROCHLORIDE
     Dosage: 250 UG, UNK
     Route: 030
     Dates: start: 20180926
  77. METHYLPREDNISOLONE SODIUM SUCCINATE. [Suspect]
     Active Substance: METHYLPREDNISOLONE SODIUM SUCCINATE
     Dosage: 125 MG, UNK
     Route: 040
     Dates: start: 20180512
  78. VINCRISTINE SULFATE. [Suspect]
     Active Substance: VINCRISTINE SULFATE
     Dosage: 2 MG, UNK
     Route: 040
     Dates: start: 20180419
  79. TRUXIMA [Suspect]
     Active Substance: RITUXIMAB-ABBS
     Dosage: 665 MG, UNK (665 MG + IEV)
     Route: 042
     Dates: start: 20180925
  80. TRUXIMA [Suspect]
     Active Substance: RITUXIMAB-ABBS
     Dosage: 667.5 MG, UNK (667.5 MG (AS MAINTENANCE))
     Route: 042
     Dates: start: 20180803
  81. CHLORPHENAMINE [Suspect]
     Active Substance: CHLORPHENIRAMINE MALEATE
     Dosage: 10 MG, UNK (10 MG, INFUSION)
     Dates: start: 20180622
  82. CYCLOPHOSPHAMIDE. [Suspect]
     Active Substance: CYCLOPHOSPHAMIDE
     Dosage: 1.33 MG, UNK (1.335 MG, INFUSION)
     Dates: start: 20180713
  83. IFOSFAMIDE. [Suspect]
     Active Substance: IFOSFAMIDE
     Dosage: 4.4 MG, UNK (4.400 MG, INFUSION)
     Dates: start: 20181024
  84. IFOSFAMIDE. [Suspect]
     Active Substance: IFOSFAMIDE
     Dosage: 4.4 MG, UNK (4.400 MG, INFUSION)
     Dates: start: 20180927
  85. IFOSFAMIDE. [Suspect]
     Active Substance: IFOSFAMIDE
     Dosage: 4.4 MG, UNK (4.400 MG, INFUSION)
     Dates: start: 20180926
  86. ETOPOSIDE. [Suspect]
     Active Substance: ETOPOSIDE
     Dosage: 267 MG, UNK (267 MG, INFUSION)
     Dates: start: 20180926
  87. ETOPOSIDE. [Suspect]
     Active Substance: ETOPOSIDE
     Dosage: 267 MG, UNK (267 MG, INFUSION)
     Dates: start: 20181026
  88. POTASSIUM CHLORIDE. [Concomitant]
     Active Substance: POTASSIUM CHLORIDE
     Dosage: 40 MEQ, INFUSION
     Dates: start: 20181024
  89. GLUCOSE [Concomitant]
     Active Substance: DEXTROSE
     Dosage: 500 ML, INFUSION
     Dates: start: 20181026
  90. DOXORUBICIN HCL [Suspect]
     Active Substance: DOXORUBICIN HYDROCHLORIDE
     Dosage: 89 MG, UNK
     Route: 040
     Dates: start: 20180329
  91. EPIRUBICIN HCL [Suspect]
     Active Substance: EPIRUBICIN HYDROCHLORIDE
     Dosage: 178 MG, UNK
     Route: 030
     Dates: start: 20180926
  92. TRUXIMA [Suspect]
     Active Substance: RITUXIMAB-ABBS
     Dosage: 667.5 MG, UNK (667.5 MG + CHOP)
     Route: 042
     Dates: start: 20180328
  93. TRUXIMA [Suspect]
     Active Substance: RITUXIMAB-ABBS
     Dosage: 667.5 MG, UNK (667.5 MG (AS MAINTENANCE))
     Route: 042
     Dates: start: 20180823
  94. ONDANSETRON [Suspect]
     Active Substance: ONDANSETRON
     Dosage: 8 MG, WITH ETOPOSIDE AND IFOSFAMIDE
     Dates: start: 20180927
  95. IFOSFAMIDE. [Suspect]
     Active Substance: IFOSFAMIDE
     Dosage: 4.4 MG, UNK (4.400 MG, INFUSION)
     Dates: start: 20181025
  96. ETOPOSIDE. [Suspect]
     Active Substance: ETOPOSIDE
     Dosage: 267 MG, UNK (267 MG, INFUSION)
     Dates: start: 20180927
  97. DESAMETASONE [Concomitant]
     Active Substance: DEXAMETHASONE
     Dosage: 14.24 MG, INFUSION
     Dates: start: 20180927
  98. RINGER^S SOLUTION [CALCIUM CHLORIDE;POTASSIUM CHLORIDE;SODIUM CHLORIDE [Concomitant]
     Dosage: INFUSION
     Dates: start: 20180928
  99. POTASSIUM CHLORIDE. [Concomitant]
     Active Substance: POTASSIUM CHLORIDE
     Dosage: 40 MEQ, INFUSION
     Dates: start: 20181025
  100. GLUCOSE [Concomitant]
     Active Substance: DEXTROSE
     Dosage: 500 ML, INFUSION
     Dates: start: 20181025
  101. GLUCOSE [Concomitant]
     Active Substance: DEXTROSE
     Dosage: 500 ML, INFUSION
     Dates: start: 20180928
  102. PALONOSETRON. [Concomitant]
     Active Substance: PALONOSETRON HYDROCHLORIDE
     Dosage: 250 UG, UNK
     Route: 030
     Dates: start: 20181024

REACTIONS (3)
  - Asthenia [Recovered/Resolved]
  - Neutropenia [Recovered/Resolved]
  - Nausea [Recovered/Resolved]

NARRATIVE: CASE EVENT DATE: 20180622
